FAERS Safety Report 6793617-0 (Version None)
Quarter: 2010Q2

REPORT INFORMATION
  Report Type: 
  Country: None (occurrence: None)
  Receive Date: 20100624
  Receipt Date: 20081205
  Transmission Date: 20101027
  Serious: No
  Sender: FDA-Public Use
  Company Number: US-PFIZER INC-2008100427

PATIENT
  Sex: Female
  Weight: 53.181 kg

DRUGS (3)
  1. XALATAN [Suspect]
     Dates: start: 20020101
  2. CHOLESTEROL- AND TRIGLYCERIDE REDUCERS [Concomitant]
  3. ANTIHYPERTENSIVES [Concomitant]

REACTIONS (3)
  - BLEPHARAL PIGMENTATION [None]
  - BLOOD CHOLESTEROL INCREASED [None]
  - GROWTH OF EYELASHES [None]
